FAERS Safety Report 23380125 (Version 1)
Quarter: 2024Q1

REPORT INFORMATION
  Report Type: Spontaneous
  Country: CA (occurrence: CA)
  Receive Date: 20240109
  Receipt Date: 20240109
  Transmission Date: 20240410
  Serious: Yes (Death)
  Sender: FDA-Public Use
  Company Number: CA-AUROBINDO-AUR-APL-2021-049791

PATIENT
  Age: 27 Year
  Sex: Female
  Weight: 58.9 kg

DRUGS (7)
  1. PREGABALIN [Suspect]
     Active Substance: PREGABALIN
     Indication: Anxiety
     Dosage: 50 MILLIGRAM, TWO TIMES A DAY
     Route: 048
  2. PREGABALIN [Suspect]
     Active Substance: PREGABALIN
     Dosage: 75 MILLIGRAM
     Route: 048
  3. ESCITALOPRAM [Suspect]
     Active Substance: ESCITALOPRAM OXALATE
     Indication: Product used for unknown indication
     Dosage: UNK
     Route: 065
  4. LORAZEPAM [Suspect]
     Active Substance: LORAZEPAM
     Indication: Product used for unknown indication
     Dosage: UNK
     Route: 065
  5. LYRICA [Suspect]
     Active Substance: PREGABALIN
     Indication: Product used for unknown indication
     Dosage: UNK
     Route: 065
  6. NALTREXONE [Suspect]
     Active Substance: NALTREXONE
     Indication: Alcohol rehabilitation
     Dosage: 50 MILLIGRAM, ONCE A DAY
     Route: 048
  7. PANTOPRAZOLE MAGNESIUM [Concomitant]
     Active Substance: PANTOPRAZOLE MAGNESIUM
     Indication: Product used for unknown indication
     Dosage: UNK
     Route: 065

REACTIONS (8)
  - Abnormal behaviour [Fatal]
  - Completed suicide [Fatal]
  - Aggression [Fatal]
  - Binge drinking [Fatal]
  - Impulsive behaviour [Fatal]
  - Serotonin syndrome [Fatal]
  - Suicidal ideation [Fatal]
  - Drug abuse [Fatal]
